FAERS Safety Report 8620038-8 (Version None)
Quarter: 2012Q3

REPORT INFORMATION
  Report Type: 
  Country: None (occurrence: None)
  Receive Date: 20120816
  Receipt Date: 20120816
  Transmission Date: 20120928
  Serious: Yes (Other)
  Sender: FDA-Public Use
  Company Number: None

PATIENT
  Age: 55 Year
  Sex: Female
  Weight: 63.5036 kg

DRUGS (1)
  1. PICATOA 0.015% INGENOL MEBUTATE GEL LEO PHARMA [Suspect]
     Indication: ACTINIC KERATOSIS
     Dosage: 0.47G/TUBE, DAILY FOR THREE DAY, CUTANEOUS
     Route: 003
     Dates: start: 20120812, end: 20120813

REACTIONS (5)
  - APPLICATION SITE ERYTHEMA [None]
  - EYE IRRITATION [None]
  - APPLICATION SITE PAIN [None]
  - INSOMNIA [None]
  - APPLICATION SITE VESICLES [None]
